FAERS Safety Report 9177391 (Version 1)
Quarter: 2013Q1

REPORT INFORMATION
  Report Type: Report from Study
  Country: GR (occurrence: GR)
  Receive Date: 20130321
  Receipt Date: 20130321
  Transmission Date: 20140127
  Serious: Yes (Hospitalization)
  Sender: FDA-Public Use
  Company Number: GR-US-EMD SERONO, INC.-7199636

PATIENT
  Age: 52 Year
  Sex: Female

DRUGS (5)
  1. REBIF [Suspect]
     Indication: MULTIPLE SCLEROSIS
     Route: 058
     Dates: start: 200707, end: 20130114
  2. REBIF [Suspect]
     Route: 058
     Dates: start: 20130128
  3. CALCIORAL [Concomitant]
     Indication: OSTEOPOROSIS
     Route: 048
  4. LIVIAL [Concomitant]
     Indication: MENOPAUSE
     Route: 048
  5. LIVIAL [Concomitant]
     Indication: HORMONE REPLACEMENT THERAPY

REACTIONS (1)
  - Uterine cancer [Recovered/Resolved]
